FAERS Safety Report 23759015 (Version 1)
Quarter: 2024Q2

REPORT INFORMATION
  Report Type: Spontaneous
  Country: US (occurrence: None)
  Receive Date: 20240418
  Receipt Date: 20240418
  Transmission Date: 20240716
  Serious: No
  Sender: FDA-Public Use
  Company Number: US-ROCHE-3350555

PATIENT
  Age: 55 Year
  Sex: Female

DRUGS (3)
  1. KADCYLA [Suspect]
     Active Substance: ADO-TRASTUZUMAB EMTANSINE
     Indication: HER2 positive breast cancer
     Dosage: FOR 14 CYCLES
     Route: 042
     Dates: start: 202301
  2. HERCEPTIN [Suspect]
     Active Substance: TRASTUZUMAB
     Indication: HER2 positive breast cancer
     Dosage: FOR 12 WEEKS
     Route: 041
     Dates: start: 202207, end: 202210
  3. PERJETA [Suspect]
     Active Substance: PERTUZUMAB
     Indication: HER2 positive breast cancer
     Dosage: FOR 12 WEEKS
     Route: 042
     Dates: start: 202207, end: 202210

REACTIONS (5)
  - Laryngitis [Unknown]
  - Pyrexia [Unknown]
  - Upper-airway cough syndrome [Unknown]
  - Bronchitis [Not Recovered/Not Resolved]
  - Pneumonia [Not Recovered/Not Resolved]

NARRATIVE: CASE EVENT DATE: 20230501
